FAERS Safety Report 8234860-3 (Version None)
Quarter: 2012Q1

REPORT INFORMATION
  Report Type: 
  Country: None (occurrence: None)
  Receive Date: 20120321
  Receipt Date: 20110916
  Transmission Date: 20120608
  Serious: Yes (Other)
  Sender: FDA-Public Use
  Company Number: DSA_55687_2012

PATIENT
  Age: 29 Year
  Sex: Female

DRUGS (6)
  1. MALACEF-ARTESUNAME [Suspect]
     Indication: MALARIA
     Dosage: (DF INTRAVENOUS (NOT OTHERWISE SPECIFIED)
     Route: 042
     Dates: start: 20110618, end: 20110623
  2. ARTESUNATE [Concomitant]
  3. QUINIMAX [Concomitant]
  4. CLAFORAN [Suspect]
     Indication: INFECTION
     Dosage: (DF INTRAVENOUS (NOT OTHERWISE SPECIFIED)
     Route: 042
     Dates: start: 20110618, end: 20110623
  5. FLAGYL [Suspect]
     Indication: INFECTION
     Dosage: (DF INTRAVENOUS (NOT OTHERWISE SPECIFIED)
     Route: 042
     Dates: start: 20110618, end: 20110623
  6. ARANESP [Concomitant]

REACTIONS (14)
  - VISUAL ACUITY REDUCED [None]
  - MYOCLONUS [None]
  - ANAEMIA [None]
  - RETINOPATHY HYPERTENSIVE [None]
  - BLOOD CREATININE INCREASED [None]
  - ALTERED STATE OF CONSCIOUSNESS [None]
  - CONFUSIONAL STATE [None]
  - RENAL IMPAIRMENT [None]
  - DIALYSIS [None]
  - SCOTOMA [None]
  - MACULOPATHY [None]
  - HYPERTENSIVE CRISIS [None]
  - SPEECH DISORDER [None]
  - UNEVALUABLE EVENT [None]
